FAERS Safety Report 13510744 (Version 4)
Quarter: 2021Q3

REPORT INFORMATION
  Report Type: Report from Study
  Country: GB (occurrence: US)
  Receive Date: 20170503
  Receipt Date: 20210922
  Transmission Date: 20211014
  Serious: Yes (Death)
  Sender: FDA-Public Use
  Company Number: PHFR2017GB003168

PATIENT
  Sex: Male

DRUGS (15)
  1. LUCENTIS [Suspect]
     Active Substance: RANIBIZUMAB
     Dosage: 0.5 MG EVERY 5?6 WEEKS LEFT EYE
     Route: 065
     Dates: start: 20190725
  2. LUCENTIS [Suspect]
     Active Substance: RANIBIZUMAB
     Dosage: 0.5 MG EVERY 5?6 WEEKS LEFT EYE
     Route: 065
     Dates: start: 20190919
  3. LUCENTIS [Suspect]
     Active Substance: RANIBIZUMAB
     Dosage: 0.5 MG EVERY 5?6 WEEKS LEFT EYE
     Route: 065
     Dates: start: 20200916
  4. LUCENTIS [Suspect]
     Active Substance: RANIBIZUMAB
     Dosage: 0.5 MG EVERY 5?6 WEEKS LEFT EYE
     Route: 065
     Dates: start: 20191211
  5. LUCENTIS [Suspect]
     Active Substance: RANIBIZUMAB
     Dosage: PRE?FILLED SYRINGE INJECTION IN LEFT EYE.DATE OF TREATMENT GIVEN AS: 18/JUN/2019, 25/JUL/2019, 19/S
     Route: 065
  6. AZATHIOPRIN SANDOZ [Concomitant]
     Active Substance: AZATHIOPRINE
     Indication: PRODUCT USED FOR UNKNOWN INDICATION
     Dosage: UNK
     Route: 065
  7. LUCENTIS [Suspect]
     Active Substance: RANIBIZUMAB
     Dosage: 0.5 MG EVERY 5?6 WEEKS LEFT EYE
     Route: 065
     Dates: start: 20200122
  8. LUCENTIS [Suspect]
     Active Substance: RANIBIZUMAB
     Dosage: 0.5 MG EVERY 5?6 WEEKS LEFT EYE
     Route: 065
     Dates: start: 20200311
  9. NEORAL [Suspect]
     Active Substance: CYCLOSPORINE
     Indication: PRODUCT USED FOR UNKNOWN INDICATION
     Dosage: UNK
     Route: 065
  10. LUCENTIS [Suspect]
     Active Substance: RANIBIZUMAB
     Indication: CONJUNCTIVITIS
     Dosage: 0.5 MG EVERY 5?6 WEEKS LEFT EYE
     Route: 065
  11. LUCENTIS [Suspect]
     Active Substance: RANIBIZUMAB
     Indication: RETINAL OEDEMA
     Dosage: 0.5 MG EVERY 5?6 WEEKS LEFT EYE
     Route: 065
     Dates: start: 20190618
  12. LUCENTIS [Suspect]
     Active Substance: RANIBIZUMAB
     Dosage: 0.5 MG EVERY 5?6 WEEKS LEFT EYE
     Route: 065
     Dates: start: 20020527
  13. LUCENTIS [Suspect]
     Active Substance: RANIBIZUMAB
     Dosage: 0.5 MG EVERY 5?6 WEEKS LEFT EYE
     Route: 065
     Dates: start: 20200722
  14. LUCENTIS [Suspect]
     Active Substance: RANIBIZUMAB
     Dosage: 0.5 MG EVERY 5?6 WEEKS LEFT EYE
     Route: 065
     Dates: start: 20201104
  15. LUCENTIS [Suspect]
     Active Substance: RANIBIZUMAB
     Dosage: 0.5 MG EVERY 5?6 WEEKS LEFT EYE
     Route: 065
     Dates: start: 20191031

REACTIONS (3)
  - Death [Fatal]
  - Intentional product use issue [Unknown]
  - Off label use [Unknown]
